FAERS Safety Report 17337825 (Version 4)
Quarter: 2021Q4

REPORT INFORMATION
  Report Type: Report from Study
  Country: JP (occurrence: JP)
  Receive Date: 20200129
  Receipt Date: 20211229
  Transmission Date: 20220304
  Serious: Yes (Hospitalization, Other)
  Sender: FDA-Public Use
  Company Number: JP-GLAXOSMITHKLINE-JP2020JPN013136

PATIENT
  Age: 5 Decade
  Sex: Female
  Weight: 53 kg

DRUGS (23)
  1. BENLYSTA [Suspect]
     Active Substance: BELIMUMAB
     Indication: Systemic lupus erythematosus
     Dosage: 200 MG, WE
     Route: 058
     Dates: start: 20190514, end: 20190716
  2. BELIMUMAB [Suspect]
     Active Substance: BELIMUMAB
     Indication: Systemic lupus erythematosus
     Dosage: UNK, EVERY 2 WEEKS
     Route: 041
     Dates: start: 20180717, end: 20180814
  3. BELIMUMAB [Suspect]
     Active Substance: BELIMUMAB
     Dosage: UNK
     Route: 041
     Dates: start: 20180911, end: 20181204
  4. BELIMUMAB [Suspect]
     Active Substance: BELIMUMAB
     Dosage: 10 MG/KG, EVERY 4 WEEKS
     Route: 041
     Dates: start: 20190110, end: 20190412
  5. CELLCEPT [Suspect]
     Active Substance: MYCOPHENOLATE MOFETIL
     Indication: Systemic lupus erythematosus
     Dosage: UNK
     Route: 065
  6. PROGRAF [Suspect]
     Active Substance: TACROLIMUS
     Indication: Systemic lupus erythematosus
     Dosage: UNK
     Route: 065
  7. PREDNISOLONE [Suspect]
     Active Substance: PREDNISOLONE
     Indication: Systemic lupus erythematosus
     Dosage: UNK
     Route: 048
  8. PREDNISOLONE [Suspect]
     Active Substance: PREDNISOLONE
     Dosage: 8 MG, 1D
     Route: 048
     Dates: start: 20180717, end: 20180729
  9. PREDNISOLONE [Suspect]
     Active Substance: PREDNISOLONE
     Dosage: 10 MG, 1D
     Route: 048
     Dates: start: 20180730, end: 20180813
  10. PREDNISOLONE [Suspect]
     Active Substance: PREDNISOLONE
     Dosage: 9 MG, 1D
     Route: 048
     Dates: start: 20180814, end: 20180912
  11. PREDNISOLONE [Suspect]
     Active Substance: PREDNISOLONE
     Dosage: 8 MG, 1D
     Route: 048
     Dates: start: 20180913, end: 20181010
  12. PREDNISOLONE [Suspect]
     Active Substance: PREDNISOLONE
     Dosage: 7 MG, 1D
     Route: 048
     Dates: start: 20181011, end: 20181107
  13. PREDNISOLONE [Suspect]
     Active Substance: PREDNISOLONE
     Dosage: 6 MG, 1D
     Route: 048
     Dates: start: 20181108, end: 20190109
  14. PREDNISOLONE [Suspect]
     Active Substance: PREDNISOLONE
     Dosage: 5 MG, 1D
     Route: 048
     Dates: start: 20190110
  15. PLAQUENIL [Concomitant]
     Active Substance: HYDROXYCHLOROQUINE SULFATE
     Indication: Systemic lupus erythematosus
     Dosage: UNK
  16. ELDECALCITOL [Concomitant]
     Active Substance: ELDECALCITOL
     Indication: Osteoporosis
     Dosage: UNK
  17. SULFAMETHOXAZOLE\TRIMETHOPRIM [Concomitant]
     Active Substance: SULFAMETHOXAZOLE\TRIMETHOPRIM
     Indication: Prophylaxis
     Dosage: UNK
  18. DIPYRIDAMOLE [Concomitant]
     Active Substance: DIPYRIDAMOLE
     Indication: Systemic lupus erythematosus
     Dosage: UNK
  19. ETIZOLAM [Concomitant]
     Active Substance: ETIZOLAM
     Indication: Insomnia
     Dosage: UNK
  20. ZOLPIDEM TARTRATE [Concomitant]
     Active Substance: ZOLPIDEM TARTRATE
     Indication: Insomnia
     Dosage: UNK
  21. PANTETHINE [Concomitant]
     Active Substance: PANTETHINE
     Indication: Constipation
     Dosage: UNK
  22. MYONAL [Concomitant]
     Indication: Tension headache
     Dosage: UNK
  23. RABEPRAZOLE SODIUM [Concomitant]
     Active Substance: RABEPRAZOLE SODIUM

REACTIONS (1)
  - Breast cancer [Not Recovered/Not Resolved]

NARRATIVE: CASE EVENT DATE: 20190708
